FAERS Safety Report 18354088 (Version 1)
Quarter: 2020Q4

REPORT INFORMATION
  Report Type: Spontaneous
  Country: US (occurrence: US)
  Receive Date: 20201006
  Receipt Date: 20201006
  Transmission Date: 20210114
  Serious: Yes (Other)
  Sender: FDA-Public Use
  Company Number: US-GILEAD-2020-0497350

PATIENT
  Age: 33 Year
  Sex: Female

DRUGS (1)
  1. REMDESIVIR. [Suspect]
     Active Substance: REMDESIVIR
     Indication: COVID-19
     Route: 065

REACTIONS (11)
  - Chills [Recovering/Resolving]
  - Peripheral swelling [Recovering/Resolving]
  - Tremor [Recovering/Resolving]
  - Hypertension [Recovering/Resolving]
  - Nervousness [Recovering/Resolving]
  - Hypoaesthesia [Recovering/Resolving]
  - Rash [Recovering/Resolving]
  - Anxiety [Recovering/Resolving]
  - Paraesthesia [Recovering/Resolving]
  - Hyperhidrosis [Recovering/Resolving]
  - Disturbance in attention [Recovering/Resolving]

NARRATIVE: CASE EVENT DATE: 202009
